FAERS Safety Report 10066522 (Version 1)
Quarter: 2014Q2

REPORT INFORMATION
  Report Type: Spontaneous
  Country: US (occurrence: None)
  Receive Date: 20140401
  Receipt Date: 20140401
  Transmission Date: 20141212
  Serious: Yes (Hospitalization)
  Sender: FDA-Public Use
  Company Number: PHEH2013US007523

PATIENT
  Age: 82 Year
  Sex: Female

DRUGS (10)
  1. EXELON PATCH [Suspect]
     Dosage: 4.6 MG (PATCH 5 CM2), DAILY, TRANSDERMAL
     Route: 062
  2. LEVOTHYROXINE (LEVOTHYROXINE) [Concomitant]
  3. OMEPRAZOLE (OMEPRAZOLE) [Concomitant]
  4. ASPIRIN (ACETYLSALICYLIC ACID) [Concomitant]
  5. ZOLOFT (SERTRALINE HYDROCHLORIDE) [Concomitant]
  6. METOPROLOL (METOPROLOL) [Concomitant]
  7. NORVASC (AMLODIPINE BESILATE) [Concomitant]
  8. SENNA (SENNA ALEXANDRINA) [Concomitant]
  9. NAMENDA (MEMANTINE HYDROCHLORIDE) [Concomitant]
  10. DEPAKOTE (VALPROATE SEMISODIUM) [Concomitant]

REACTIONS (3)
  - Urinary tract infection [None]
  - Memory impairment [None]
  - Condition aggravated [None]
